FAERS Safety Report 8897952 (Version 1)
Quarter: 2012Q4

REPORT INFORMATION
  Report Type: 
  Country: US (occurrence: US)
  Receive Date: 20121108
  Receipt Date: 20121108
  Transmission Date: 20130627
  Serious: No
  Sender: FDA-Public Use
  Company Number: US-AMGEN-USASP2012033016

PATIENT
  Sex: Female

DRUGS (7)
  1. ENBREL [Suspect]
     Indication: PRODUCT USED FOR UNKNOWN INDICATION
     Dosage: 50 mg, qwk
     Route: 058
  2. VICODIN [Concomitant]
     Dosage: UNK
  3. GABAPENTIN [Concomitant]
     Dosage: 100 mg, UNK
  4. ETODOLAC [Concomitant]
     Dosage: 400 mg, UNK
  5. SAVELLA [Concomitant]
     Dosage: 50 mg, UNK
  6. STOOL SOFTENER [Concomitant]
     Dosage: 100 mg, UNK
  7. VITAMIN D3 [Concomitant]
     Dosage: 1000 IU, UNK

REACTIONS (2)
  - Injection site erythema [Unknown]
  - Injection site swelling [Unknown]
